FAERS Safety Report 22947020 (Version 2)
Quarter: 2024Q3

REPORT INFORMATION
  Report Type: Spontaneous
  Country: US (occurrence: US)
  Receive Date: 20230915
  Receipt Date: 20240730
  Transmission Date: 20241017
  Serious: Yes (Other)
  Sender: CHATTEM
  Company Number: US-OPELLA-2023OHG006528

PATIENT
  Age: 61 Year
  Sex: Male
  Weight: 72.57 kg

DRUGS (1)
  1. TALC [Suspect]
     Active Substance: TALC
     Indication: Product used for unknown indication

REACTIONS (8)
  - Renal cancer [Unknown]
  - Pleural mesothelioma malignant [Unknown]
  - Pleural effusion [Unknown]
  - Exposure to chemical pollution [Unknown]
  - Weight decreased [Unknown]
  - Pain [Unknown]
  - Cough [Unknown]
  - Anxiety [Unknown]

NARRATIVE: CASE EVENT DATE: 20220812
